FAERS Safety Report 6298725-9 (Version None)
Quarter: 2009Q3

REPORT INFORMATION
  Report Type: 
  Country: None (occurrence: None)
  Receive Date: 20090806
  Receipt Date: 20070605
  Transmission Date: 20100115
  Serious: Yes (Other)
  Sender: FDA-Public Use
  Company Number: US-ASTRAZENECA-2006UW23553

PATIENT
  Age: 49 Year
  Sex: Female
  Weight: 71.4 kg

DRUGS (16)
  1. SEROQUEL [Suspect]
     Indication: DEPRESSION
     Route: 048
     Dates: start: 19980101, end: 20060101
  2. SEROQUEL [Suspect]
     Dosage: 200MG-300MG
     Route: 048
     Dates: start: 20021101
  3. CELEXA [Concomitant]
     Route: 048
     Dates: start: 20021101
  4. EFFEXOR [Concomitant]
     Indication: DEPRESSION
     Dosage: 75MG-150MG
     Route: 048
     Dates: start: 20030319
  5. EFFEXOR [Concomitant]
     Indication: DISSOCIATIVE IDENTITY DISORDER
     Dosage: 75MG-150MG
     Route: 048
     Dates: start: 20030319
  6. EFFEXOR [Concomitant]
     Indication: POST-TRAUMATIC STRESS DISORDER
     Dosage: 75MG-150MG
     Route: 048
     Dates: start: 20030319
  7. TRAZODONE HCL [Concomitant]
     Indication: INSOMNIA
     Dosage: 50MG AT NIGHT AS PER NECESSARY
     Route: 048
     Dates: start: 19990519
  8. TRAMADOL HCL [Concomitant]
     Route: 048
     Dates: start: 20031020
  9. ZOLOFT [Concomitant]
     Dosage: 50MG-100MG
     Route: 048
     Dates: start: 20040123
  10. NEURONTIN [Concomitant]
     Dosage: 300MG-600MG
     Route: 048
     Dates: start: 20040325
  11. PROTONIX [Concomitant]
     Route: 048
     Dates: start: 20040630
  12. PROZAC [Concomitant]
     Route: 048
     Dates: start: 20040630
  13. OXYCODONE [Concomitant]
     Route: 048
     Dates: start: 20060105
  14. NAPROXEN [Concomitant]
     Route: 048
     Dates: start: 20051213
  15. DEXAMETHASONE [Concomitant]
     Route: 048
     Dates: start: 20060609
  16. CYCLOBENZAPRINE HCL [Concomitant]
     Route: 048
     Dates: start: 19920206

REACTIONS (7)
  - CELLULITIS [None]
  - DIABETES MELLITUS [None]
  - DIABETES MELLITUS INADEQUATE CONTROL [None]
  - DIABETIC NEUROPATHY [None]
  - GROIN INFECTION [None]
  - TYPE 1 DIABETES MELLITUS [None]
  - TYPE 2 DIABETES MELLITUS [None]
